FAERS Safety Report 9970015 (Version 1)
Quarter: 2014Q1

REPORT INFORMATION
  Report Type: Spontaneous
  Country: US (occurrence: None)
  Receive Date: 20140127
  Receipt Date: 20140127
  Transmission Date: 20141002
  Serious: Yes (Other)
  Sender: FDA-Public Use
  Company Number: 1136857

PATIENT
  Age: 66 Year
  Sex: Male

DRUGS (3)
  1. RITUXAN [Suspect]
     Indication: LYMPHOMA
     Dosage: (780 UNIT NOT REPORTED), UNKNOWN
     Dates: start: 20010821
  2. TYLENOL (PARACETAMOL) [Concomitant]
  3. BENADRYL (DIPHENHYDRAMINE HYDROCHLORIDE) [Concomitant]

REACTIONS (3)
  - Feeling cold [None]
  - Tremor [None]
  - Dyspnoea [None]
